FAERS Safety Report 18273440 (Version 2)
Quarter: 2020Q4

REPORT INFORMATION
  Report Type: Spontaneous
  Country: US (occurrence: US)
  Receive Date: 20200916
  Receipt Date: 20201112
  Transmission Date: 20210113
  Serious: No
  Sender: FDA-Public Use
  Company Number: US-ASTRAZENECA-2020SE86085

PATIENT
  Sex: Female

DRUGS (5)
  1. METFORMIN [Concomitant]
     Active Substance: METFORMIN HYDROCHLORIDE
     Route: 065
  2. HYDROCHOLORTHIAZIDE [Concomitant]
     Route: 065
  3. METROPOLOL [Concomitant]
     Active Substance: METOPROLOL
     Route: 065
  4. ESTROGEN [Concomitant]
     Active Substance: ESTROGENS
     Dosage: DAILY
     Route: 065
  5. BYDUREON [Suspect]
     Active Substance: EXENATIDE
     Indication: DIABETES MELLITUS
     Route: 065

REACTIONS (3)
  - Injection site mass [Not Recovered/Not Resolved]
  - Injection site pruritus [Unknown]
  - Device issue [Unknown]
